FAERS Safety Report 7970258-0 (Version None)
Quarter: 2011Q4

REPORT INFORMATION
  Report Type: 
  Country: None (occurrence: None)
  Receive Date: 20111122
  Receipt Date: 20110901
  Transmission Date: 20120403
  Serious: No
  Sender: FDA-Public Use
  Company Number: PHEH2011US01111

PATIENT
  Age: 30 Year
  Sex: Female

DRUGS (2)
  1. SPRINTEC (ETHINYLESTRADIOL, NORGESTIMATE) TABLET [Concomitant]
  2. GILENYA [Suspect]
     Indication: MULTIPLE SCLEROSIS
     Dosage: 1 DF, EVERYDAY, ORAL
     Route: 048
     Dates: start: 20110701

REACTIONS (3)
  - FATIGUE [None]
  - HEADACHE [None]
  - DIZZINESS [None]
